FAERS Safety Report 18672364 (Version 4)
Quarter: 2022Q1

REPORT INFORMATION
  Report Type: Report from Study
  Country: AU (occurrence: AU)
  Receive Date: 20201228
  Receipt Date: 20220308
  Transmission Date: 20220423
  Serious: Yes (Death, Hospitalization)
  Sender: FDA-Public Use
  Company Number: AU-CELGENE-AUS-20201203552

PATIENT
  Age: 72 Year
  Sex: Male
  Weight: 96.12 kg

DRUGS (12)
  1. ENASIDENIB MESYLATE [Suspect]
     Active Substance: ENASIDENIB MESYLATE
     Indication: Acute myeloid leukaemia
     Dosage: 100 MILLIGRAM
     Route: 048
     Dates: start: 20201030, end: 20201217
  2. PIOGLITAZONE [Suspect]
     Active Substance: PIOGLITAZONE
     Indication: Acute myeloid leukaemia
     Dosage: 15 MILLIGRAM
     Route: 048
     Dates: start: 20201029, end: 20201126
  3. ATENOLOL [Concomitant]
     Active Substance: ATENOLOL
     Indication: Hypertension
     Dosage: 25 MILLIGRAM
     Route: 048
     Dates: start: 2005
  4. ATENOLOL [Concomitant]
     Active Substance: ATENOLOL
     Indication: Atrial fibrillation
  5. RAMIPRIL [Concomitant]
     Active Substance: RAMIPRIL
     Indication: Hypertension
     Dosage: 5 MILLIGRAM
     Route: 048
     Dates: start: 2005
  6. ALLOPURINOL [Concomitant]
     Active Substance: ALLOPURINOL
     Indication: Prophylaxis
     Dosage: 100 MILLIGRAM
     Route: 048
     Dates: start: 20201009
  7. AMBISOME [Concomitant]
     Active Substance: AMPHOTERICIN B
     Indication: Antifungal prophylaxis
     Dosage: 38.5714 MILLIGRAM
     Route: 041
     Dates: start: 20201006, end: 20201204
  8. INDOMETHACIN [Concomitant]
     Active Substance: INDOMETHACIN
     Indication: Gout
     Dosage: 100 MILLIGRAM
     Route: 048
     Dates: start: 2010
  9. METOCLOPRAMIDE [Concomitant]
     Active Substance: METOCLOPRAMIDE
     Indication: Nausea
     Dosage: 10 MILLIGRAM
     Route: 041
     Dates: start: 20201127, end: 20201127
  10. DIGOXIN [Concomitant]
     Active Substance: DIGOXIN
     Indication: Atrial fibrillation
     Dosage: 250 MICROGRAM
     Route: 048
     Dates: start: 2005, end: 20201203
  11. DIGOXIN [Concomitant]
     Active Substance: DIGOXIN
     Dosage: 62.5 MICROGRAM
     Route: 048
     Dates: start: 20201203
  12. POSACONAZOLE [Concomitant]
     Active Substance: POSACONAZOLE
     Indication: Antifungal prophylaxis
     Dosage: 300 MILLIGRAM
     Route: 048
     Dates: start: 20201205

REACTIONS (6)
  - Escherichia sepsis [Not Recovered/Not Resolved]
  - Differentiation syndrome [Not Recovered/Not Resolved]
  - Tumour lysis syndrome [Not Recovered/Not Resolved]
  - Hyperbilirubinaemia [Not Recovered/Not Resolved]
  - Multiple organ dysfunction syndrome [Fatal]
  - Sepsis [Fatal]

NARRATIVE: CASE EVENT DATE: 20201126
